FAERS Safety Report 7468923-7 (Version None)
Quarter: 2011Q2

REPORT INFORMATION
  Report Type: 
  Country: None (occurrence: None)
  Receive Date: 20110510
  Receipt Date: 20090106
  Transmission Date: 20111010
  Serious: No
  Sender: FDA-Public Use
  Company Number: 2009BI000540

PATIENT
  Age: 44 Year
  Sex: Male

DRUGS (1)
  1. TYSABRI [Suspect]
     Indication: MULTIPLE SCLEROSIS
     Route: 042
     Dates: start: 20081210

REACTIONS (4)
  - MUSCULAR WEAKNESS [None]
  - PERONEAL NERVE PALSY [None]
  - LOSS OF CONTROL OF LEGS [None]
  - BACK PAIN [None]
